FAERS Safety Report 9258006 (Version 1)
Quarter: 2013Q1

REPORT INFORMATION
  Report Type: Spontaneous
  Country: US (occurrence: None)
  Receive Date: 20121212
  Receipt Date: 20121212
  Transmission Date: 20140127
  Serious: No
  Sender: FDA-Public Use
  Company Number: 1209USA004162

PATIENT
  Age: 68 Year
  Sex: Male

DRUGS (3)
  1. VICTRELIS (BOCEPREVIR) [Suspect]
     Indication: HEPATITIS C
     Dates: start: 20120413
  2. PEGINTRON (PEGINTERFERON ALFA-2B) POWDER FOR INJECTION [Suspect]
     Indication: HEPATITIS C
     Dates: start: 20120316
  3. REBETOL (RIBAVIRIN) CAPSULE [Suspect]
     Indication: HEPATITIS C
     Dates: start: 20120316

REACTIONS (8)
  - White blood cell count decreased [None]
  - Pain [None]
  - Influenza [None]
  - Malaise [None]
  - Headache [None]
  - Nausea [None]
  - Anaemia [None]
  - Dysphonia [None]
